FAERS Safety Report 23635352 (Version 1)
Quarter: 2024Q1

REPORT INFORMATION
  Report Type: Spontaneous
  Country: US (occurrence: US)
  Receive Date: 20240315
  Receipt Date: 20240315
  Transmission Date: 20240409
  Serious: No
  Sender: FDA-Public Use
  Company Number: US-CIPLA LTD.-2024US00032

PATIENT

DRUGS (1)
  1. LENALIDOMIDE [Suspect]
     Active Substance: LENALIDOMIDE
     Indication: Plasma cell myeloma in remission
     Dosage: 5 MILLIGRAM, QD (TAKE 1 CAPSULE BY MOUTH DAILY FOR 14 DS 14 DS OFF)
     Route: 048

REACTIONS (2)
  - Dyspnoea [Unknown]
  - Anaemia [Unknown]
